FAERS Safety Report 6533086-9 (Version None)
Quarter: 2010Q1

REPORT INFORMATION
  Report Type: 
  Country: None (occurrence: None)
  Receive Date: 20100111
  Receipt Date: 20100105
  Transmission Date: 20100710
  Serious: Yes (Death, Life-Threatening, Hospitalization)
  Sender: FDA-Public Use
  Company Number: BE-CELGENEUS-013-C5013-09121050

PATIENT
  Age: 76 Year
  Sex: Male
  Weight: 85 kg

DRUGS (19)
  1. CC-5013 [Suspect]
     Indication: MULTIPLE MYELOMA
     Route: 048
     Dates: start: 20091016, end: 20091127
  2. DEXAMETHASONE [Suspect]
     Indication: MULTIPLE MYELOMA
     Dosage: 80MG A MONTH
     Route: 065
     Dates: start: 20091016, end: 20091105
  3. WARFARIN SODIUM [Concomitant]
     Indication: DRUG USE FOR UNKNOWN INDICATION
     Route: 065
  4. FOLIC ACID [Concomitant]
     Indication: VITAMIN SUPPLEMENTATION
     Route: 048
     Dates: start: 19980608, end: 20091128
  5. OMEPRAZOLE [Concomitant]
     Indication: GASTRITIS PROPHYLAXIS
     Route: 048
     Dates: start: 20050801, end: 20091128
  6. SOTALEX [Concomitant]
     Indication: ARRHYTHMIA
     Route: 048
     Dates: start: 20080601, end: 20091203
  7. SOTALEX [Concomitant]
     Route: 048
     Dates: start: 20091204, end: 20091204
  8. DUOVENT AEROSOL [Concomitant]
     Indication: COUGH
     Route: 055
     Dates: start: 20091128, end: 20091203
  9. DUOVENT AEROSOL [Concomitant]
     Route: 055
     Dates: start: 20091127, end: 20091127
  10. DUOVENT AEROSOL [Concomitant]
     Route: 055
     Dates: start: 20091204, end: 20091204
  11. DUOVENT AEROSOL [Concomitant]
     Route: 055
     Dates: start: 20091206, end: 20091208
  12. MORPHINE [Concomitant]
     Indication: PAIN
     Route: 058
     Dates: start: 20091206, end: 20091206
  13. MORPHINE [Concomitant]
     Route: 058
     Dates: start: 20091207, end: 20091207
  14. MORPHINE [Concomitant]
     Route: 058
     Dates: start: 20091211, end: 20091211
  15. MORPHINE [Concomitant]
     Route: 058
     Dates: start: 20091208, end: 20091210
  16. CLEXANE [Concomitant]
     Indication: THROMBOSIS PROPHYLAXIS
     Route: 058
     Dates: start: 20091205, end: 20091207
  17. ZANTAC [Concomitant]
     Route: 051
     Dates: start: 20091205, end: 20091211
  18. PERFUSALGAN [Concomitant]
     Indication: PAIN
     Route: 048
     Dates: start: 20091209, end: 20091210
  19. PERFUSALGAN [Concomitant]
     Route: 048
     Dates: start: 20091211, end: 20091211

REACTIONS (5)
  - CEREBRAL INFARCTION [None]
  - COUGH [None]
  - DISEASE PROGRESSION [None]
  - FEBRILE NEUTROPENIA [None]
  - MALAISE [None]
